FAERS Safety Report 8850003 (Version 2)
Quarter: 2012Q4

REPORT INFORMATION
  Report Type: 
  Country: US (occurrence: US)
  Receive Date: 20121019
  Receipt Date: 20121203
  Transmission Date: 20130627
  Serious: Yes (Hospitalization)
  Sender: FDA-Public Use
  Company Number: US-BAUSCH-BL-2012-001267

PATIENT
  Age: 18 None
  Sex: Female

DRUGS (2)
  1. DESMOPRESSIN ACETATE [Suspect]
     Indication: DIABETES INSIPIDUS
     Dosage: 2 sprays in each nostril, two times per day
     Route: 045
     Dates: start: 2004, end: 20120928
  2. DESMOPRESSIN ACETATE [Suspect]
     Dosage: 2 sprays in each nostril, two times per day
     Route: 045
     Dates: start: 20121001, end: 20121004

REACTIONS (7)
  - Blood sodium decreased [Not Recovered/Not Resolved]
  - Convulsion [Recovered/Resolved]
  - Loss of consciousness [Recovered/Resolved]
  - Pain in extremity [Not Recovered/Not Resolved]
  - Vomiting [Recovered/Resolved]
  - Confusional state [Recovered/Resolved]
  - Feeling abnormal [None]
